FAERS Safety Report 18009612 (Version 2)
Quarter: 2020Q3

REPORT INFORMATION
  Report Type: Spontaneous
  Country: IT (occurrence: IT)
  Receive Date: 20200710
  Receipt Date: 20200715
  Transmission Date: 20201103
  Serious: Yes (Hospitalization, Other)
  Sender: FDA-Public Use
  Company Number: IT-SA-2020SA175975

PATIENT

DRUGS (11)
  1. AZITHROMYCIN ANHYDROUS. [Suspect]
     Active Substance: AZITHROMYCIN ANHYDROUS
     Indication: COVID-19
     Dosage: UNK
     Dates: start: 20200321, end: 20200401
  2. AZITHROMYCIN ANHYDROUS. [Suspect]
     Active Substance: AZITHROMYCIN ANHYDROUS
     Indication: ANTIBIOTIC THERAPY
  3. OXYGEN. [Concomitant]
     Active Substance: OXYGEN
     Indication: COVID-19
     Dosage: UNK
  4. COBICISTAT;DARUNAVIR;EMTRICITABINE;TENOFOVIR [Concomitant]
     Active Substance: COBICISTAT\DARUNAVIR\EMTRICITABINE\TENOFOVIR ALAFENAMIDE
     Indication: HIV INFECTION
     Dosage: SINGLE TABLET REGIMEN
  5. HYDROXYCHLOROQUINE [Suspect]
     Active Substance: HYDROXYCHLOROQUINE
     Indication: COVID-19
     Dosage: UNK
     Dates: start: 20200321, end: 20200401
  6. SARILUMAB [Suspect]
     Active Substance: SARILUMAB
     Dosage: 200 MG, 1X
     Dates: start: 20200331, end: 20200331
  7. HYDROXYCHLOROQUINE [Suspect]
     Active Substance: HYDROXYCHLOROQUINE
     Indication: PRODUCT USE IN UNAPPROVED INDICATION
  8. EMTRICITABINE;RILPIVIRINE;TENOFOVIR ALAFENAMIDE [Concomitant]
     Active Substance: EMTRICITABINE\RILPIVIRINE HYDROCHLORIDE\TENOFOVIR ALAFENAMIDE FUMARATE
     Indication: HIV INFECTION
     Dosage: UNK, SINGLE TABLET REGIMEN
  9. LOW MOLECULAR WEIGHT HEPARIN [Concomitant]
     Active Substance: UNSPECIFIED INGREDIENT
     Indication: ANTICOAGULANT THERAPY
     Dosage: PROPHYLACTIC DOSE
     Dates: start: 202003
  10. SARILUMAB [Suspect]
     Active Substance: SARILUMAB
     Indication: COVID-19
     Dosage: 200 MG, 1X
     Route: 042
     Dates: start: 20200328, end: 20200328
  11. PERINDOPRIL [Concomitant]
     Active Substance: PERINDOPRIL
     Indication: HYPERTENSION

REACTIONS (6)
  - Conduction disorder [Recovering/Resolving]
  - Electrocardiogram QT prolonged [Recovering/Resolving]
  - Drug effective for unapproved indication [Unknown]
  - Bradycardia [Recovering/Resolving]
  - Atrioventricular block [Recovering/Resolving]
  - Off label use [Unknown]

NARRATIVE: CASE EVENT DATE: 2020
